FAERS Safety Report 15593182 (Version 3)
Quarter: 2019Q1

REPORT INFORMATION
  Report Type: Report from Study
  Country: US (occurrence: US)
  Receive Date: 20181106
  Receipt Date: 20190326
  Transmission Date: 20190417
  Serious: Yes (Hospitalization)
  Sender: FDA-Public Use
  Company Number: US-ACTELION-A-NJ2018-166780

PATIENT
  Sex: Female
  Weight: 69.39 kg

DRUGS (2)
  1. LETAIRIS [Concomitant]
     Active Substance: AMBRISENTAN
     Dosage: 10 MG, QD
     Route: 048
  2. UPTRAVI [Suspect]
     Active Substance: SELEXIPAG
     Indication: PULMONARY ARTERIAL HYPERTENSION
     Dosage: 1600 MCG, BID
     Route: 048

REACTIONS (7)
  - Headache [Unknown]
  - Diarrhoea [Unknown]
  - Viral infection [Unknown]
  - Weight decreased [Unknown]
  - Pain in extremity [Unknown]
  - Pneumonia aspiration [Unknown]
  - Fluid retention [Unknown]
